FAERS Safety Report 6747185-X (Version None)
Quarter: 2010Q2

REPORT INFORMATION
  Report Type: 
  Country: None (occurrence: None)
  Receive Date: 20100528
  Receipt Date: 20100520
  Transmission Date: 20101027
  Serious: Yes (Other)
  Sender: FDA-Public Use
  Company Number: JP-PFIZER INC-2010050452

PATIENT
  Age: 66 Year
  Sex: Male

DRUGS (4)
  1. LIPITOR [Suspect]
     Indication: HYPERLIPIDAEMIA
     Dosage: 10 MG, UNKNOWN/D
     Route: 048
     Dates: start: 20100319, end: 20100330
  2. LIPITOR [Suspect]
     Indication: HYPERCHOLESTEROLAEMIA
  3. VALSARTAN [Concomitant]
     Dosage: UNK
     Route: 048
  4. NAPAGELN [Concomitant]
     Dosage: UNK
     Dates: start: 20100402

REACTIONS (6)
  - ARTHRALGIA [None]
  - BACK PAIN [None]
  - CHROMATURIA [None]
  - MALAISE [None]
  - PAIN [None]
  - SENSATION OF HEAVINESS [None]
